FAERS Safety Report 4415285-5 (Version None)
Quarter: 2004Q3

REPORT INFORMATION
  Report Type: 
  Country: None (occurrence: None)
  Receive Date: 20040730
  Receipt Date: 20040720
  Transmission Date: 20050211
  Serious: Yes (Hospitalization)
  Sender: FDA-Public Use
  Company Number: 04P-062-0267706-00

PATIENT
  Sex: Female

DRUGS (1)
  1. BIAXIN [Suspect]
     Dosage: PER ORAL
     Route: 048

REACTIONS (2)
  - HEPATOMEGALY [None]
  - JAUNDICE [None]
